FAERS Safety Report 16161955 (Version 1)
Quarter: 2019Q2

REPORT INFORMATION
  Report Type: Spontaneous
  Country: GB (occurrence: GB)
  Receive Date: 20190405
  Receipt Date: 20190405
  Transmission Date: 20190711
  Serious: Yes (Other)
  Sender: FDA-Public Use
  Company Number: GB-ACCORD-117970

PATIENT
  Age: 76 Year
  Sex: Male
  Weight: 68 kg

DRUGS (11)
  1. FINASTERIDE. [Concomitant]
     Active Substance: FINASTERIDE
     Dates: start: 20181218
  2. ROSUVASTATIN. [Suspect]
     Active Substance: ROSUVASTATIN
     Indication: PRODUCT USED FOR UNKNOWN INDICATION
     Dates: start: 20180321
  3. CLOPIDOGREL [Concomitant]
     Active Substance: CLOPIDOGREL BISULFATE
     Dates: start: 20180926
  4. SILDENAFIL. [Concomitant]
     Active Substance: SILDENAFIL
     Dates: start: 20180215
  5. AMLODIPINE [Concomitant]
     Active Substance: AMLODIPINE BESYLATE
     Dates: start: 20180504
  6. HYDROCORTISONE. [Concomitant]
     Active Substance: HYDROCORTISONE
     Dosage: POTENCY: MILD.
     Dates: start: 20190208
  7. NITROFURANTOIN/NITROFURANTOIN SODIUM [Concomitant]
     Dates: start: 20181130, end: 20181205
  8. EZETIMIBE. [Concomitant]
     Active Substance: EZETIMIBE
     Dates: start: 20190208
  9. TAMSULOSIN [Concomitant]
     Active Substance: TAMSULOSIN
     Dates: start: 20181218
  10. COCODAMOL [Concomitant]
     Active Substance: ACETAMINOPHEN\CODEINE PHOSPHATE
     Dosage: TAKE 1 OR 2, 4 TIMES PER DAY.
     Dates: start: 20180215
  11. LAXIDO [Concomitant]
     Active Substance: POLYETHYLENE GLYCOL 3350\POTASSIUM CHLORIDE\SODIUM BICARBONATE\SODIUM CHLORIDE
     Dosage: TWICE DAILY
     Dates: start: 20181123, end: 20181223

REACTIONS (1)
  - Neck pain [Recovered/Resolved]
